FAERS Safety Report 8553197-6 (Version None)
Quarter: 2012Q3

REPORT INFORMATION
  Report Type: 
  Country: None (occurrence: None)
  Receive Date: 20120731
  Receipt Date: 20120724
  Transmission Date: 20120928
  Serious: Yes (Hospitalization)
  Sender: FDA-Public Use
  Company Number: IT-PFIZER INC-2012175633

PATIENT
  Age: 46 Year
  Sex: Female

DRUGS (4)
  1. EN [Suspect]
     Dosage: 20 ML
     Route: 048
     Dates: start: 20120717, end: 20120717
  2. SEROQUEL [Suspect]
     Dosage: 50 MG X 60 CAPSULES
     Route: 048
     Dates: start: 20120717, end: 20120717
  3. LYRICA [Suspect]
     Dosage: 75 MG X 28 CAPSULES
     Route: 048
     Dates: start: 20120717, end: 20120717
  4. EFFEXOR XR [Suspect]
     Dosage: 75 MG X 7 CAPSULES
     Route: 048
     Dates: start: 20120717, end: 20120717

REACTIONS (2)
  - SUICIDE ATTEMPT [None]
  - SOPOR [None]
